FAERS Safety Report 12137727 (Version 2)
Quarter: 2016Q1

REPORT INFORMATION
  Report Type: Spontaneous
  Country: US (occurrence: US)
  Receive Date: 20160302
  Receipt Date: 20160309
  Transmission Date: 20160526
  Serious: Yes (Other)
  Sender: FDA-Public Use
  Company Number: US-LPDUSPRD-20160102

PATIENT
  Age: 56 Year
  Sex: Male
  Weight: 127.8 kg

DRUGS (14)
  1. SAW PALMETTO [Concomitant]
     Active Substance: SAW PALMETTO
     Dosage: UNKNOWN DOSE, DAILY
     Route: 065
  2. CEFAZOLIN [Concomitant]
     Active Substance: CEFAZOLIN
     Dosage: 2 GM X 1 DOSE
     Route: 042
     Dates: start: 20160125, end: 20160125
  3. CELECOXIB. [Concomitant]
     Active Substance: CELECOXIB
     Dosage: 200 MG X 1 DOSE
     Route: 048
     Dates: start: 20160125, end: 20160125
  4. DEXAMETHASONE SODIUM PHOSPHATE INJECTION, USP (4901-25) [Concomitant]
     Active Substance: DEXAMETHASONE SODIUM PHOSPHATE
     Dosage: 8 MG X 1 DOSE
     Route: 042
     Dates: start: 20160125, end: 20160125
  5. METOCLOPRAMIDE. [Concomitant]
     Active Substance: METOCLOPRAMIDE
     Dosage: 10 MG X 1 DOSE
     Route: 048
     Dates: start: 20160125, end: 20160125
  6. GLUCOSAMINE/CHONDROITIN [Concomitant]
     Dosage: UNKNOWN DOSE DAILY
     Route: 065
  7. TRANEXAMIC ACID INJECTION(0517-0960-10) [Suspect]
     Active Substance: TRANEXAMIC ACID
     Dosage: 1 GM X 2 DOSES
     Route: 040
     Dates: start: 20160125, end: 20160125
  8. NORCO GEQ [Concomitant]
     Dosage: 7.5/325 EVERY 4H PRN
     Route: 048
  9. VANCOMYCIN [Concomitant]
     Active Substance: VANCOMYCIN
     Dosage: 1.5 GM X 1 DOSE
     Route: 042
     Dates: start: 20160125, end: 20160125
  10. ASPIRIN. [Concomitant]
     Active Substance: ASPIRIN
     Dosage: 325 MG TWICE DAILY
     Route: 048
  11. MIDAZOLAM [Concomitant]
     Active Substance: MIDAZOLAM\MIDAZOLAM HYDROCHLORIDE
     Dosage: 2 MG X 1
     Route: 042
     Dates: start: 20160125, end: 20160125
  12. RANITIDINE [Concomitant]
     Active Substance: RANITIDINE\RANITIDINE HYDROCHLORIDE
     Dosage: 150 MG X 1 DOSE
     Route: 048
     Dates: start: 20160125, end: 20160125
  13. MULTIVITAMIN [Concomitant]
     Active Substance: VITAMINS
     Dosage: UNKNOWN DOSE DAILY
     Route: 065
  14. IBUPROFEN. [Concomitant]
     Active Substance: IBUPROFEN
     Dosage: UNKNOWN DOSE, PRN
     Route: 065

REACTIONS (4)
  - Hyperhidrosis [Unknown]
  - Tachycardia [Unknown]
  - Nausea [Unknown]
  - Hypotension [Unknown]

NARRATIVE: CASE EVENT DATE: 20160125
